FAERS Safety Report 4835077-2 (Version None)
Quarter: 2005Q4

REPORT INFORMATION
  Report Type: 
  Country: None (occurrence: None)
  Receive Date: 20051114
  Receipt Date: 20051031
  Transmission Date: 20060501
  Serious: Yes (Hospitalization)
  Sender: FDA-Public Use
  Company Number: MED-05075

PATIENT
  Sex: Female

DRUGS (1)
  1. DIPHENHYDRAMINE 50MG [Suspect]

REACTIONS (5)
  - ABNORMAL BEHAVIOUR [None]
  - FALL [None]
  - HAEMORRHAGE [None]
  - PSYCHOMOTOR HYPERACTIVITY [None]
  - SUICIDAL IDEATION [None]
